FAERS Safety Report 23401373 (Version 2)
Quarter: 2024Q1

REPORT INFORMATION
  Report Type: Spontaneous
  Country: US (occurrence: US)
  Receive Date: 20240115
  Receipt Date: 20240122
  Transmission Date: 20240409
  Serious: Yes (Other)
  Sender: FDA-Public Use
  Company Number: US-BRISTOL-MYERS SQUIBB COMPANY-2024-006841

PATIENT
  Age: 90 Year
  Sex: Male
  Weight: 63.05 kg

DRUGS (1)
  1. ELIQUIS [Suspect]
     Active Substance: APIXABAN
     Indication: Atrial fibrillation

REACTIONS (3)
  - Fall [Unknown]
  - Peripheral vascular disorder [Not Recovered/Not Resolved]
  - Vasculitic ulcer [Recovered/Resolved]
